FAERS Safety Report 12714268 (Version 1)
Quarter: 2016Q3

REPORT INFORMATION
  Report Type: Spontaneous
  Country: US (occurrence: US)
  Receive Date: 20160905
  Receipt Date: 20160905
  Transmission Date: 20161109
  Serious: No
  Sender: FDA-Public Use
  Company Number: US-JAZZ-2016-US-008762

PATIENT
  Sex: Female

DRUGS (46)
  1. XYREM [Suspect]
     Active Substance: SODIUM OXYBATE
     Dosage: 3 G, BID
     Route: 048
     Dates: start: 201203
  2. CITRACAL + D ER [Concomitant]
  3. CARDIZEM CD [Concomitant]
     Active Substance: DILTIAZEM HYDROCHLORIDE
  4. FOSAMAX [Concomitant]
     Active Substance: ALENDRONATE SODIUM
  5. MINOXIDIL. [Concomitant]
     Active Substance: MINOXIDIL
  6. CELEBREX [Concomitant]
     Active Substance: CELECOXIB
  7. ULTRAM [Concomitant]
     Active Substance: TRAMADOL HYDROCHLORIDE
  8. LIDODERM [Concomitant]
     Active Substance: LIDOCAINE
  9. NIZORAL [Concomitant]
     Active Substance: KETOCONAZOLE
  10. ALPRAZOLAM ER [Concomitant]
     Active Substance: ALPRAZOLAM
  11. FEMARA [Concomitant]
     Active Substance: LETROZOLE
  12. LASIX [Concomitant]
     Active Substance: FUROSEMIDE
  13. XYREM [Suspect]
     Active Substance: SODIUM OXYBATE
     Indication: FIBROMYALGIA
     Dosage: 4 G, BID
     Route: 048
     Dates: start: 200609, end: 200611
  14. CYMBALTA [Concomitant]
     Active Substance: DULOXETINE HYDROCHLORIDE
  15. VEGA [Concomitant]
  16. ELMIRON [Concomitant]
     Active Substance: PENTOSAN POLYSULFATE SODIUM
  17. PROVIGIL [Concomitant]
     Active Substance: MODAFINIL
  18. BENICAR [Concomitant]
     Active Substance: OLMESARTAN MEDOXOMIL
  19. MULTAQ [Concomitant]
     Active Substance: DRONEDARONE
  20. ASPIRIN. [Concomitant]
     Active Substance: ASPIRIN
  21. AZELASTINE [Concomitant]
     Active Substance: AZELASTINE
  22. TUMS EX [Concomitant]
     Active Substance: CALCIUM CARBONATE
  23. PATADAY [Concomitant]
     Active Substance: OLOPATADINE HYDROCHLORIDE
  24. MYRBETRIQ ER [Concomitant]
  25. CALCIUM [Concomitant]
     Active Substance: CALCIUM
  26. PROLIA [Concomitant]
     Active Substance: DENOSUMAB
  27. LORAZEPAM. [Concomitant]
     Active Substance: LORAZEPAM
  28. FLONASE [Concomitant]
     Active Substance: FLUTICASONE PROPIONATE
  29. TYLENOL EXTRA STRENGTH [Concomitant]
     Active Substance: ACETAMINOPHEN
  30. COUMADIN [Concomitant]
     Active Substance: WARFARIN SODIUM
  31. VITAMIN D [Concomitant]
     Active Substance: CHOLECALCIFEROL
  32. GELNIQUE [Concomitant]
     Active Substance: OXYBUTYNIN
  33. ZAROXOLYN [Concomitant]
     Active Substance: METOLAZONE
  34. ZYRTEC [Concomitant]
     Active Substance: CETIRIZINE HYDROCHLORIDE
  35. LIPITOR [Concomitant]
     Active Substance: ATORVASTATIN CALCIUM
  36. XYREM [Suspect]
     Active Substance: SODIUM OXYBATE
     Dosage: DOSE ADJSUTMENTS
     Route: 048
  37. RANEXA [Concomitant]
     Active Substance: RANOLAZINE
  38. FLUOCINOLONE [Concomitant]
     Active Substance: FLUOCINOLONE
  39. NORVASC [Concomitant]
     Active Substance: AMLODIPINE BESYLATE
  40. SONATA [Concomitant]
     Active Substance: ZALEPLON
  41. TOPROL XL [Concomitant]
     Active Substance: METOPROLOL SUCCINATE
  42. NEXIUM [Concomitant]
     Active Substance: ESOMEPRAZOLE MAGNESIUM
  43. DYMISTA [Concomitant]
     Active Substance: AZELASTINE HYDROCHLORIDE\FLUTICASONE PROPIONATE
  44. ARIMIDEX [Concomitant]
     Active Substance: ANASTROZOLE
  45. WARFARIN SODIUM. [Concomitant]
     Active Substance: WARFARIN SODIUM
  46. LOSARTAN POTASSIUM. [Concomitant]
     Active Substance: LOSARTAN POTASSIUM

REACTIONS (1)
  - Road traffic accident [Recovered/Resolved]
